FAERS Safety Report 11750300 (Version 1)
Quarter: 2015Q4

REPORT INFORMATION
  Report Type: Report from Study
  Country: IN (occurrence: IN)
  Receive Date: 20151118
  Receipt Date: 20151118
  Transmission Date: 20160304
  Serious: Yes (Death, Life-Threatening)
  Sender: FDA-Public Use
  Company Number: IN-VIFOR (INTERNATIONAL) INC.-VIT-2015-03142

PATIENT
  Age: 71 Year
  Sex: Female

DRUGS (1)
  1. MIRCERA [Suspect]
     Active Substance: METHOXY POLYETHYLENE GLYCOL-EPOETIN BETA
     Indication: NEPHROGENIC ANAEMIA
     Route: 042
     Dates: start: 201507

REACTIONS (2)
  - Respiratory disorder [Fatal]
  - Cardiac disorder [Fatal]

NARRATIVE: CASE EVENT DATE: 2015
